FAERS Safety Report 8216081-3 (Version None)
Quarter: 2012Q1

REPORT INFORMATION
  Report Type: 
  Country: None (occurrence: None)
  Receive Date: 20120316
  Receipt Date: 20120309
  Transmission Date: 20120608
  Serious: Yes (Other)
  Sender: FDA-Public Use
  Company Number: JP-VERTEX PHARMACEUTICALS INC.-AE-2012-001975

PATIENT
  Age: 40 Year
  Sex: Male

DRUGS (11)
  1. REBETOL [Concomitant]
     Route: 048
  2. PEG-INTRON [Concomitant]
     Route: 058
     Dates: start: 20120203
  3. REBETOL [Concomitant]
     Route: 048
     Dates: start: 20120203
  4. PEG-INTRON [Concomitant]
     Route: 058
     Dates: start: 20120127
  5. CLARITIN [Concomitant]
     Route: 048
     Dates: start: 20120120, end: 20120122
  6. TELAVIC (TELAPREVIR) [Suspect]
     Indication: HEPATITIS C
     Route: 048
     Dates: start: 20120120
  7. PEG-INTRON [Concomitant]
     Indication: HEPATITIS C
     Route: 058
     Dates: start: 20120120
  8. REBETOL [Concomitant]
     Indication: HEPATITIS C
     Route: 048
     Dates: start: 20120120, end: 20120202
  9. RABEPRAZOLE SODIUM [Concomitant]
     Route: 048
     Dates: start: 20120120
  10. NAPROXEN [Concomitant]
     Route: 048
     Dates: start: 20120120, end: 20120122
  11. REBETOL [Concomitant]
     Route: 048
     Dates: start: 20120309

REACTIONS (3)
  - ANAEMIA [None]
  - NEUTROPENIA [None]
  - HYPERURICAEMIA [None]
